FAERS Safety Report 20870407 (Version 2)
Quarter: 2022Q2

REPORT INFORMATION
  Report Type: Spontaneous
  Country: US (occurrence: US)
  Receive Date: 20220525
  Receipt Date: 20220620
  Transmission Date: 20220720
  Serious: Yes (Hospitalization, Other)
  Sender: FDA-Public Use
  Company Number: US-BRISTOL-MYERS SQUIBB COMPANY-2022-039538

PATIENT
  Age: 60 Year
  Sex: Male

DRUGS (2)
  1. POMALYST [Suspect]
     Active Substance: POMALIDOMIDE
     Indication: Plasma cell myeloma
     Route: 048
     Dates: start: 20210416
  2. POMALYST [Suspect]
     Active Substance: POMALIDOMIDE
     Dosage: 21 DAYS ON, THEN 7 DAYS OF
     Route: 048
     Dates: start: 20210421

REACTIONS (8)
  - Chills [Unknown]
  - Seizure [Unknown]
  - Fatigue [Unknown]
  - Constipation [Unknown]
  - COVID-19 [Unknown]
  - Eczema [Unknown]
  - Brain neoplasm [Unknown]
  - Asthenia [Unknown]

NARRATIVE: CASE EVENT DATE: 20220421
